FAERS Safety Report 5476280-0 (Version None)
Quarter: 2007Q4

REPORT INFORMATION
  Report Type: 
  Country: None (occurrence: None)
  Receive Date: 20071003
  Receipt Date: 20070925
  Transmission Date: 20080405
  Serious: Yes (Other)
  Sender: FDA-Public Use
  Company Number: US-PFIZER INC-2007059684

PATIENT
  Sex: Male
  Weight: 65.8 kg

DRUGS (6)
  1. CHANTIX [Suspect]
     Indication: SMOKING CESSATION THERAPY
     Dates: start: 20070301, end: 20070710
  2. ALL OTHER THERAPEUTIC PRODUCTS [Concomitant]
  3. KLONOPIN [Concomitant]
  4. FOLIC ACID [Concomitant]
  5. PROTONIX [Concomitant]
  6. SPIRIVA [Concomitant]

REACTIONS (1)
  - CATARACT [None]
